FAERS Safety Report 5671527-X (Version None)
Quarter: 2008Q1

REPORT INFORMATION
  Report Type: 
  Country: None (occurrence: None)
  Receive Date: 20080318
  Receipt Date: 20080221
  Transmission Date: 20080703
  Serious: No
  Sender: FDA-Public Use
  Company Number: US-BOEHRINGER INGELHEIM GMBH, GERMANY-2007-BP-26876BP

PATIENT
  Sex: Female

DRUGS (9)
  1. SPIRIVA [Suspect]
     Indication: CHRONIC OBSTRUCTIVE PULMONARY DISEASE
     Route: 055
     Dates: start: 20060101
  2. SPIRIVA [Suspect]
     Indication: EMPHYSEMA
  3. ADVAIR DISKUS 100/50 [Concomitant]
  4. ALBUTEROL [Concomitant]
  5. ALBUTEROL W/IPRATROPIUM [Concomitant]
  6. OXYGEN [Concomitant]
     Dosage: 2L/MIN
  7. LISINOPRIL [Concomitant]
     Indication: HYPERTENSION
  8. HYDROCODONE BITARTRATE [Concomitant]
     Indication: BACK PAIN
  9. PREDNISONE [Concomitant]

REACTIONS (3)
  - LOWER RESPIRATORY TRACT INFECTION [None]
  - NASOPHARYNGITIS [None]
  - PRODUCTIVE COUGH [None]
